FAERS Safety Report 7514002-X (Version None)
Quarter: 2011Q2

REPORT INFORMATION
  Report Type: 
  Country: None (occurrence: None)
  Receive Date: 20110531
  Receipt Date: 20110523
  Transmission Date: 20111010
  Serious: Yes (Hospitalization)
  Sender: FDA-Public Use
  Company Number: US-SANOFI-AVENTIS-2011SA033001

PATIENT
  Age: 69 Year
  Sex: Male

DRUGS (4)
  1. LISINOPRIL [Concomitant]
  2. ASPIRIN [Concomitant]
  3. PLAVIX [Suspect]
     Route: 048
     Dates: start: 20110227
  4. ZOCOR [Concomitant]

REACTIONS (1)
  - CHEST DISCOMFORT [None]
